FAERS Safety Report 7373926-7 (Version None)
Quarter: 2011Q1

REPORT INFORMATION
  Report Type: 
  Country: None (occurrence: None)
  Receive Date: 20110325
  Receipt Date: 20110322
  Transmission Date: 20110831
  Serious: Yes (Other)
  Sender: FDA-Public Use
  Company Number: US-PFIZER INC-2010154778

PATIENT
  Sex: Female
  Weight: 53.515 kg

DRUGS (11)
  1. SIMVASTATIN [Concomitant]
     Indication: BLOOD CHOLESTEROL INCREASED
     Dosage: 20 MG, 1X/DAY
     Route: 048
  2. BENICAR [Concomitant]
     Indication: HYPERTENSION
     Dosage: 20 MG, 1X/DAY
     Route: 048
  3. CALCIUM [Concomitant]
     Dosage: UNK
  4. TOVIAZ [Interacting]
     Dosage: 8 MG, 1X/DAY
     Dates: start: 20101115
  5. TOVIAZ [Interacting]
     Dosage: 4 MG, DAILY
     Route: 048
     Dates: start: 20110314
  6. VALIUM [Concomitant]
     Indication: SLEEP DISORDER
     Dosage: 1.5 MG, 1X/DAY
     Route: 048
  7. ACTONEL [Concomitant]
     Indication: BONE DENSITY ABNORMAL
     Dosage: UNK
  8. SIMVASTATIN [Concomitant]
     Dosage: UNK
  9. FENTANYL [Interacting]
     Indication: BACK DISORDER
     Dosage: 25 MG, ONCE EVERY THREE DAYS
     Route: 062
  10. TOVIAZ [Suspect]
     Indication: HYPERTONIC BLADDER
     Dosage: 4 MG, 1X/DAY
     Route: 048
     Dates: start: 20101101, end: 20101114
  11. BENICAR [Concomitant]
     Dosage: UNK

REACTIONS (6)
  - INSOMNIA [None]
  - MALAISE [None]
  - CHEST PAIN [None]
  - SOMNOLENCE [None]
  - NOCTURIA [None]
  - DRUG INTERACTION [None]
